FAERS Safety Report 17440118 (Version 1)
Quarter: 2020Q1

REPORT INFORMATION
  Report Type: Spontaneous
  Country: US (occurrence: US)
  Receive Date: 20200219
  Receipt Date: 20200219
  Transmission Date: 20200409
  Serious: Yes (Other)
  Sender: FDA-Public Use
  Company Number: None

PATIENT
  Age: 21 Year
  Sex: Male
  Weight: 77.11 kg

DRUGS (2)
  1. DUPIXENT [Suspect]
     Active Substance: DUPILUMAB
  2. TOPICAL STEROID CREAMS [Concomitant]
     Active Substance: UNSPECIFIED INGREDIENT

REACTIONS (2)
  - Erythema [None]
  - Eczema [None]

NARRATIVE: CASE EVENT DATE: 20191020
